FAERS Safety Report 7482577-5 (Version None)
Quarter: 2011Q2

REPORT INFORMATION
  Report Type: 
  Country: None (occurrence: None)
  Receive Date: 20110516
  Receipt Date: 20110421
  Transmission Date: 20111010
  Serious: Yes (Other)
  Sender: FDA-Public Use
  Company Number: US-ASTRAZENECA-2011SE23247

PATIENT
  Age: 62 Year
  Sex: Female

DRUGS (4)
  1. CRESTOR [Suspect]
     Route: 048
  2. NEXIUM [Suspect]
     Route: 048
  3. LIPITOR [Suspect]
  4. NEXIUM [Suspect]
     Route: 048

REACTIONS (5)
  - LIMB DISCOMFORT [None]
  - OESOPHAGEAL SPASM [None]
  - MUSCLE SPASMS [None]
  - PAIN IN EXTREMITY [None]
  - DRUG INEFFECTIVE [None]
